FAERS Safety Report 5750935-2 (Version None)
Quarter: 2008Q2

REPORT INFORMATION
  Report Type: 
  Country: None (occurrence: None)
  Receive Date: 20080528
  Receipt Date: 20080519
  Transmission Date: 20081010
  Serious: Yes (Hospitalization, Disabling, Other)
  Sender: FDA-Public Use
  Company Number: US-MERCK-0704USA05892

PATIENT
  Age: 59 Year
  Sex: Female

DRUGS (22)
  1. FOSAMAX [Suspect]
     Indication: OSTEOPOROSIS
     Route: 048
     Dates: start: 19980101, end: 20010101
  2. FOSAMAX [Suspect]
     Route: 048
     Dates: start: 20010101, end: 20050601
  3. ACCUPRIL [Concomitant]
     Route: 065
     Dates: start: 19980501, end: 20020501
  4. ALLOPURINOL [Concomitant]
     Route: 065
     Dates: start: 19991001, end: 20020201
  5. AZATHIOPRINE [Concomitant]
     Route: 065
     Dates: start: 19971101, end: 20031001
  6. CHOLESTYRAMINE RESIN [Concomitant]
     Route: 065
     Dates: start: 19990101, end: 19990401
  7. CLONIDINE [Concomitant]
     Route: 065
     Dates: start: 19991101, end: 20000201
  8. CYTOXAN [Concomitant]
     Route: 065
     Dates: start: 19991201, end: 20000301
  9. DIBENZYLINE CAPSULES [Concomitant]
     Route: 065
     Dates: start: 19990601, end: 19991101
  10. FUROSEMIDE [Concomitant]
     Route: 065
     Dates: start: 19990801
  11. LIPITOR [Concomitant]
     Route: 065
     Dates: start: 19991001
  12. METOPROLOL [Concomitant]
     Route: 065
     Dates: start: 19980301, end: 20020301
  13. NEORAL [Concomitant]
     Route: 065
     Dates: start: 19980101, end: 19990101
  14. ZOCOR [Concomitant]
     Route: 065
     Dates: start: 19990501, end: 19990601
  15. DIFLORASONE DIACETATE [Concomitant]
     Route: 065
     Dates: start: 19990401
  16. GUAIFED [Concomitant]
     Route: 065
     Dates: start: 19981101
  17. LIDEX [Concomitant]
     Route: 065
     Dates: start: 19980101
  18. LUXIQ [Concomitant]
     Route: 065
     Dates: start: 19990701
  19. NEXIUM [Concomitant]
     Route: 065
     Dates: start: 19990601
  20. OCUFLOX [Concomitant]
     Route: 065
     Dates: start: 19990601
  21. TRIAMTERENE [Concomitant]
     Route: 065
     Dates: start: 19980401
  22. METHOTREXATE [Concomitant]
     Route: 065
     Dates: start: 19970801, end: 19991101

REACTIONS (28)
  - ADVERSE DRUG REACTION [None]
  - ALOPECIA [None]
  - BACTERIAL INFECTION [None]
  - BLOOD CHOLESTEROL [None]
  - BRONCHITIS [None]
  - CANDIDIASIS [None]
  - CARDIAC FAILURE CONGESTIVE [None]
  - DEEP VEIN THROMBOSIS [None]
  - DIABETES MELLITUS [None]
  - DUODENAL ULCER [None]
  - EYE INFECTION [None]
  - FRACTURE [None]
  - FUNGAL INFECTION [None]
  - GASTROENTERITIS VIRAL [None]
  - GASTROOESOPHAGEAL REFLUX DISEASE [None]
  - GOUT [None]
  - HYPERTENSION [None]
  - INFLUENZA [None]
  - JAW FRACTURE [None]
  - LEUKOPENIA [None]
  - LUNG NEOPLASM [None]
  - ORAL HERPES [None]
  - OSTEOMYELITIS [None]
  - OSTEONECROSIS [None]
  - PARESIS CRANIAL NERVE [None]
  - SINUSITIS [None]
  - SPINAL COMPRESSION FRACTURE [None]
  - WEIGHT DECREASED [None]
